FAERS Safety Report 4471006-1 (Version None)
Quarter: 2004Q4

REPORT INFORMATION
  Report Type: 
  Country: None (occurrence: None)
  Receive Date: 20041011
  Receipt Date: 20040928
  Transmission Date: 20050328
  Serious: Yes (Other)
  Sender: FDA-Public Use
  Company Number: FR-ROCHE-381737

PATIENT
  Age: 80 Year
  Sex: Female

DRUGS (6)
  1. RIVOTRIL [Suspect]
     Indication: RESTLESS LEGS SYNDROME
     Route: 065
     Dates: start: 20030315
  2. FUMAFER [Concomitant]
  3. PARACETAMOL [Concomitant]
  4. LANSOPRAZOLE [Concomitant]
  5. RYTHMOL [Concomitant]
  6. COUMADIN [Concomitant]

REACTIONS (2)
  - MYASTHENIC SYNDROME [None]
  - NEUROPATHY PERIPHERAL [None]
